FAERS Safety Report 15119544 (Version 1)
Quarter: 2018Q3

REPORT INFORMATION
  Report Type: Spontaneous
  Country: US (occurrence: US)
  Receive Date: 20180709
  Receipt Date: 20180709
  Transmission Date: 20181010
  Serious: No
  Sender: FDA-Public Use
  Company Number: US-PFIZER INC-2018274031

PATIENT
  Age: 65 Year
  Sex: Male
  Weight: 97.52 kg

DRUGS (1)
  1. LYRICA [Suspect]
     Active Substance: PREGABALIN
     Indication: OPHTHALMIC HERPES ZOSTER
     Dosage: 75 MG, 1X/DAY (DIRECTED TO TAKE TWICE DAILY, BUT TOOK ONCE DAILY)
     Route: 048
     Dates: start: 201708

REACTIONS (2)
  - Drug ineffective for unapproved indication [Not Recovered/Not Resolved]
  - Intentional product misuse [Unknown]

NARRATIVE: CASE EVENT DATE: 201708
